FAERS Safety Report 8790492 (Version 1)
Quarter: 2012Q4

REPORT INFORMATION
  Report Type: 
  Country: BR (occurrence: None)
  Receive Date: 20120905
  Receipt Date: 20120905
  Transmission Date: 20130627
  Serious: Yes (Other)
  Sender: FDA-Public Use
  Company Number: 2012SP001301

PATIENT
  Age: 26 Year
  Sex: Female

DRUGS (1)
  1. ETOMIDATE [Suspect]
     Indication: WADA TEST
     Route: 040

REACTIONS (6)
  - Tremor [None]
  - Eye pain [None]
  - Hyperaemia [None]
  - Scintillating scotoma [None]
  - Macular oedema [None]
  - Retinal artery occlusion [None]
